FAERS Safety Report 8059289-2 (Version None)
Quarter: 2012Q1

REPORT INFORMATION
  Report Type: 
  Country: None (occurrence: None)
  Receive Date: 20120120
  Receipt Date: 20120117
  Transmission Date: 20120608
  Serious: Yes (Hospitalization, Other)
  Sender: FDA-Public Use
  Company Number: FR-PFIZER INC-K201100912

PATIENT
  Age: 53 Year
  Sex: Male

DRUGS (12)
  1. ATORVASTATIN CALCIUM [Suspect]
     Dosage: UNK
     Route: 048
     Dates: start: 20110530, end: 20110614
  2. EUPRESSYL [Suspect]
     Dosage: UNK
     Route: 048
     Dates: start: 20110529
  3. SOLU-MEDROL [Concomitant]
     Dosage: UNK
     Dates: start: 20110601, end: 20110604
  4. AMLODIPINE BESYLATE [Suspect]
     Dosage: UNK
     Route: 048
  5. KEPPRA [Suspect]
     Dosage: UNK
     Route: 048
  6. FUCIDINE CAP [Concomitant]
     Dosage: UNK
     Dates: start: 20110501
  7. KAYEXALATE [Suspect]
     Dosage: UNK
     Route: 048
     Dates: start: 20110603, end: 20110626
  8. PREDNISOLONE [Suspect]
     Dosage: UNK
     Route: 048
     Dates: start: 20110604, end: 20110627
  9. REPAGLINIDE [Suspect]
     Indication: DIABETES MELLITUS
     Dosage: UNK
     Route: 048
     Dates: start: 20110603, end: 20110626
  10. LOCOID [Concomitant]
     Dosage: UNK
     Dates: start: 20110501, end: 20110501
  11. RAMIPRIL [Suspect]
     Dosage: UNK
     Route: 048
     Dates: start: 20110604, end: 20110614
  12. CITALOPRAM [Suspect]
     Dosage: UNK
     Route: 048

REACTIONS (3)
  - RENAL IMPAIRMENT [None]
  - TUBULOINTERSTITIAL NEPHRITIS [None]
  - DIZZINESS [None]
